FAERS Safety Report 18343779 (Version 1)
Quarter: 2020Q4

REPORT INFORMATION
  Report Type: Spontaneous
  Country: US (occurrence: US)
  Receive Date: 20201002
  Receipt Date: 20201002
  Transmission Date: 20210114
  Serious: Yes (Death)
  Sender: FDA-Public Use
  Company Number: None

PATIENT
  Age: 67 Year
  Sex: Male

DRUGS (1)
  1. SOD PHENYLBUTYRATE TB 500MG [Suspect]
     Active Substance: SODIUM PHENYLBUTYRATE
     Indication: AMYOTROPHIC LATERAL SCLEROSIS
     Route: 048
     Dates: start: 20191129

REACTIONS (1)
  - Death [None]

NARRATIVE: CASE EVENT DATE: 20201001
